FAERS Safety Report 7003185-6 (Version None)
Quarter: 2010Q3

REPORT INFORMATION
  Report Type: 
  Country: None (occurrence: None)
  Receive Date: 20100920
  Receipt Date: 20100908
  Transmission Date: 20110219
  Serious: Yes (Other)
  Sender: FDA-Public Use
  Company Number: US-WYE-H17420410

PATIENT
  Sex: Female
  Weight: 49.94 kg

DRUGS (6)
  1. EFFEXOR XR [Suspect]
     Indication: ANXIETY
     Route: 048
     Dates: start: 20100101, end: 20100101
  2. EFFEXOR XR [Suspect]
     Dates: start: 20100101, end: 20100101
  3. EFFEXOR XR [Suspect]
     Dates: start: 20100101, end: 20100101
  4. EFFEXOR XR [Suspect]
     Dates: start: 20100101
  5. LEXAPRO [Concomitant]
     Dosage: UNKNOWN
  6. LEVOTHYROXINE SODIUM [Concomitant]
     Indication: THYROID DISORDER
     Dosage: UNKNOWN

REACTIONS (12)
  - ABDOMINAL DISTENSION [None]
  - BLOOD CHOLESTEROL INCREASED [None]
  - BLOOD GLUCOSE INCREASED [None]
  - DISTURBANCE IN ATTENTION [None]
  - DRUG EFFECT DECREASED [None]
  - HYPERHIDROSIS [None]
  - INSOMNIA [None]
  - MEMORY IMPAIRMENT [None]
  - READING DISORDER [None]
  - THYROID FUNCTION TEST ABNORMAL [None]
  - UNEVALUABLE EVENT [None]
  - WEIGHT INCREASED [None]
